FAERS Safety Report 9354395 (Version 3)
Quarter: 2013Q3

REPORT INFORMATION
  Report Type: Spontaneous
  Country: US (occurrence: US)
  Receive Date: 20130618
  Receipt Date: 20130904
  Transmission Date: 20140515
  Serious: Yes (Hospitalization, Other)
  Sender: FDA-Public Use
  Company Number: US-009507513-1306USA005554

PATIENT
  Age: 64 Year
  Sex: Male
  Weight: 82.54 kg

DRUGS (1)
  1. VICTRELIS [Suspect]
     Indication: CHRONIC HEPATITIS C
     Dosage: 800 MG, TID
     Route: 048
     Dates: start: 20130507

REACTIONS (3)
  - Transient ischaemic attack [Recovered/Resolved]
  - Cerebrovascular accident [Unknown]
  - Blood glucose abnormal [Unknown]
